FAERS Safety Report 6667720-X (Version None)
Quarter: 2010Q2

REPORT INFORMATION
  Report Type: 
  Country: None (occurrence: None)
  Receive Date: 20100405
  Receipt Date: 20100322
  Transmission Date: 20101027
  Serious: Yes (Other)
  Sender: FDA-Public Use
  Company Number: US-MYLANLABS-2010S1004716

PATIENT
  Age: 19 Month
  Sex: Female

DRUGS (1)
  1. CYCLOBENZAPRINE [Suspect]
     Indication: ACCIDENTAL EXPOSURE
     Route: 065

REACTIONS (6)
  - ACCIDENTAL DRUG INTAKE BY CHILD [None]
  - GAIT DISTURBANCE [None]
  - IRRITABILITY [None]
  - RESTLESSNESS [None]
  - SOMNOLENCE [None]
  - VOMITING [None]
